FAERS Safety Report 9454587 (Version 4)
Quarter: 2014Q4

REPORT INFORMATION
  Report Type: Spontaneous
  Country: US (occurrence: US)
  Receive Date: 20130812
  Receipt Date: 20141103
  Transmission Date: 20150529
  Serious: Yes (Hospitalization, Disabling, Other)
  Sender: FDA-Public Use
  Company Number: US-009507513-1308USA003144

PATIENT
  Sex: Female

DRUGS (6)
  1. VITAMINS (UNSPECIFIED) [Concomitant]
     Active Substance: VITAMINS
     Dosage: 1000 IU, QD
     Dates: start: 2006
  2. LEVOTHYROXINE SODIUM. [Concomitant]
     Active Substance: LEVOTHYROXINE SODIUM
     Indication: HYPOTHYROIDISM
     Dosage: UNK
     Dates: start: 1997
  3. CALCIUM (UNSPECIFIED) [Concomitant]
     Active Substance: CALCIUM
     Dosage: 600 MG, BID
     Dates: start: 2006
  4. FOSAMAX [Suspect]
     Active Substance: ALENDRONATE SODIUM
     Indication: OSTEOPOROSIS
     Dosage: 70 MG, UNK
     Route: 048
     Dates: start: 20020710, end: 20080414
  5. ALENDRONATE SODIUM. [Suspect]
     Active Substance: ALENDRONATE SODIUM
     Indication: OSTEOPOROSIS
     Dosage: 70 MG, QW
     Route: 048
     Dates: start: 20030219, end: 20091028
  6. BONIVA [Suspect]
     Active Substance: IBANDRONATE SODIUM
     Indication: OSTEOPOROSIS
     Dosage: 150 MG, UNK
     Route: 048
     Dates: start: 20091024, end: 20120307

REACTIONS (42)
  - Low turnover osteopathy [Not Recovered/Not Resolved]
  - Open reduction of fracture [Unknown]
  - Neoplasm skin [Unknown]
  - Back pain [Unknown]
  - Lumbar vertebral fracture [Unknown]
  - Oropharyngeal pain [Unknown]
  - Foot deformity [Unknown]
  - Osteoarthritis [Unknown]
  - Rib fracture [Unknown]
  - Headache [Unknown]
  - Nasopharyngitis [Unknown]
  - Femur fracture [Not Recovered/Not Resolved]
  - Intramedullary rod insertion [Unknown]
  - Tinea pedis [Unknown]
  - Dermatitis [Unknown]
  - Cough [Unknown]
  - Palmoplantar keratoderma [Unknown]
  - Dysphagia [Unknown]
  - Polyuria [Unknown]
  - Femur fracture [Not Recovered/Not Resolved]
  - Pharyngitis [Unknown]
  - Joint stiffness [Unknown]
  - Spinal cord injury [Unknown]
  - Osteopenia [Unknown]
  - Muscular weakness [Unknown]
  - Muscular weakness [Unknown]
  - Paraesthesia [Unknown]
  - Sinus bradycardia [Unknown]
  - Traumatic arthritis [Unknown]
  - Stress fracture [Not Recovered/Not Resolved]
  - Hepatitis B [Unknown]
  - Spinal compression fracture [Unknown]
  - Skin disorder [Unknown]
  - Fungal skin infection [Unknown]
  - Hyperlipidaemia [Unknown]
  - Hyperkeratosis [Unknown]
  - Osteoporosis [Not Recovered/Not Resolved]
  - Pain in extremity [Unknown]
  - Musculoskeletal chest pain [Unknown]
  - Osteopetrosis [Unknown]
  - Neck pain [Unknown]
  - Fear [Unknown]

NARRATIVE: CASE EVENT DATE: 200912
